FAERS Safety Report 12404263 (Version 2)
Quarter: 2016Q2

REPORT INFORMATION
  Report Type: Spontaneous
  Country: FR (occurrence: FR)
  Receive Date: 20160525
  Receipt Date: 20160621
  Transmission Date: 20160815
  Serious: Yes (Congenital Anomaly, Other)
  Sender: FDA-Public Use
  Company Number: FR-ABBVIE-16P-056-1635271-00

PATIENT
  Sex: Male

DRUGS (1)
  1. DEPAKINE [Suspect]
     Active Substance: VALPROATE SODIUM
     Indication: MATERNAL EXPOSURE TIMING UNSPECIFIED
     Route: 064

REACTIONS (11)
  - Abnormal behaviour [Unknown]
  - Foetal exposure during pregnancy [Unknown]
  - Strabismus [Unknown]
  - Language disorder [Unknown]
  - Agitation [Unknown]
  - Learning disorder [Unknown]
  - Dysplasia [Unknown]
  - Ophthalmoplegia [Unknown]
  - Aphasia [Unknown]
  - Autism spectrum disorder [Not Recovered/Not Resolved]
  - Crying [Unknown]

NARRATIVE: CASE EVENT DATE: 199903
